FAERS Safety Report 25334211 (Version 1)
Quarter: 2025Q2

REPORT INFORMATION
  Report Type: Spontaneous
  Country: CA (occurrence: CA)
  Receive Date: 20250520
  Receipt Date: 20250520
  Transmission Date: 20250717
  Serious: Yes (Other)
  Sender: NOVO NORDISK
  Company Number: CA-NOVOPROD-1428075

PATIENT
  Age: 70 Year
  Sex: Female

DRUGS (2)
  1. WEGOVY [Suspect]
     Active Substance: SEMAGLUTIDE
     Indication: Product used for unknown indication
     Dates: start: 20240826
  2. WEGOVY [Suspect]
     Active Substance: SEMAGLUTIDE
     Dates: start: 20241217, end: 20250507

REACTIONS (1)
  - Macular oedema [Unknown]
